FAERS Safety Report 7081270-0 (Version None)
Quarter: 2010Q4

REPORT INFORMATION
  Report Type: 
  Country: None (occurrence: None)
  Receive Date: 20101103
  Receipt Date: 20101021
  Transmission Date: 20110411
  Serious: Yes (Hospitalization)
  Sender: FDA-Public Use
  Company Number: JP-WATSON-2010-13913

PATIENT
  Sex: Male

DRUGS (3)
  1. RAPAFLO [Suspect]
     Indication: DYSURIA
     Dosage: 4 MG, DAILY, PRN
     Route: 048
     Dates: start: 20100806, end: 20101015
  2. RAPAFLO [Suspect]
     Dosage: 4 MG, DAILY
     Route: 048
     Dates: start: 20081203, end: 20100730
  3. PREDNISOLONE [Concomitant]
     Indication: ERYTHEMA MULTIFORME
     Dosage: UNK
     Route: 048
     Dates: start: 20101008

REACTIONS (5)
  - ERYTHEMA [None]
  - ERYTHEMA MULTIFORME [None]
  - GENERALISED ERYTHEMA [None]
  - PAPULE [None]
  - PRURITUS GENERALISED [None]
